FAERS Safety Report 14819135 (Version 2)
Quarter: 2018Q2

REPORT INFORMATION
  Report Type: Spontaneous
  Country: US (occurrence: US)
  Receive Date: 20180427
  Receipt Date: 20180611
  Transmission Date: 20180711
  Serious: No
  Sender: FDA-Public Use
  Company Number: US-PFIZER INC-2018170433

PATIENT
  Age: 44 Year
  Sex: Female

DRUGS (1)
  1. XELJANZ XR [Suspect]
     Active Substance: TOFACITINIB CITRATE
     Indication: RHEUMATOID ARTHRITIS
     Dosage: 11 MG, 1X/DAY
     Dates: start: 2018, end: 2018

REACTIONS (5)
  - Malaise [Unknown]
  - Vomiting [Not Recovered/Not Resolved]
  - Renal disorder [Unknown]
  - Condition aggravated [Not Recovered/Not Resolved]
  - Sinus congestion [Unknown]

NARRATIVE: CASE EVENT DATE: 2018
